FAERS Safety Report 24951917 (Version 3)
Quarter: 2025Q1

REPORT INFORMATION
  Report Type: Report from Study
  Country: US (occurrence: US)
  Receive Date: 20250210
  Receipt Date: 20250222
  Transmission Date: 20250409
  Serious: Yes (Hospitalization, Other)
  Sender: ABBVIE
  Company Number: US-ABBVIE-6123812

PATIENT
  Age: 58 Year
  Sex: Female
  Weight: 93.439 kg

DRUGS (8)
  1. RINVOQ [Suspect]
     Active Substance: UPADACITINIB
     Indication: Psoriatic arthropathy
     Dosage: 15 MILLIGRAM
     Route: 048
     Dates: start: 20250124
  2. RINVOQ [Suspect]
     Active Substance: UPADACITINIB
     Indication: Psoriatic arthropathy
     Dosage: 15 MILLIGRAM
     Route: 048
     Dates: start: 20240718, end: 202501
  3. ZYRTEC [Concomitant]
     Active Substance: CETIRIZINE HYDROCHLORIDE
     Indication: Product used for unknown indication
  4. LISINOPRIL [Concomitant]
     Active Substance: LISINOPRIL
     Indication: Product used for unknown indication
  5. FAMOTIDINE [Concomitant]
     Active Substance: FAMOTIDINE
     Indication: Product used for unknown indication
  6. DULOXETINE [Concomitant]
     Active Substance: DULOXETINE
     Indication: Product used for unknown indication
  7. ROSUVASTATIN [Concomitant]
     Active Substance: ROSUVASTATIN
     Indication: Product used for unknown indication
  8. Zep bound [Concomitant]
     Indication: Product used for unknown indication

REACTIONS (10)
  - Feeling abnormal [Recovered/Resolved]
  - Cardiac disorder [Recovered/Resolved]
  - Transient ischaemic attack [Not Recovered/Not Resolved]
  - Cerebrovascular accident [Recovering/Resolving]
  - Asthenia [Recovered/Resolved]
  - Seizure [Recovering/Resolving]
  - Unresponsive to stimuli [Recovered/Resolved]
  - Limb discomfort [Recovered/Resolved]
  - Headache [Recovered/Resolved]
  - Sleep paralysis [Unknown]

NARRATIVE: CASE EVENT DATE: 20250122
